FAERS Safety Report 7647311-4 (Version None)
Quarter: 2011Q3

REPORT INFORMATION
  Report Type: 
  Country: None (occurrence: None)
  Receive Date: 20110801
  Receipt Date: 20110721
  Transmission Date: 20111222
  Serious: Yes (Hospitalization, Other)
  Sender: FDA-Public Use
  Company Number: US-BAYER-201017146NA

PATIENT
  Age: 34 Year
  Sex: Female

DRUGS (4)
  1. YAZ [Suspect]
     Indication: MENSTRUAL CYCLE MANAGEMENT
     Route: 048
     Dates: start: 20070601
  2. YASMIN [Suspect]
     Indication: CONTRACEPTION
     Route: 048
     Dates: start: 20070601
  3. YAZ [Suspect]
     Indication: ORAL CONTRACEPTION
  4. YAZ [Suspect]
     Indication: MENORRHAGIA

REACTIONS (7)
  - VOMITING [None]
  - CHOLECYSTITIS ACUTE [None]
  - NAUSEA [None]
  - CHOLELITHIASIS [None]
  - CHEST PAIN [None]
  - CHOLECYSTITIS CHRONIC [None]
  - GALLBLADDER DISORDER [None]
